FAERS Safety Report 11127192 (Version 1)
Quarter: 2015Q2

REPORT INFORMATION
  Report Type: Spontaneous
  Country: US (occurrence: None)
  Receive Date: 20150520
  Receipt Date: 20150520
  Transmission Date: 20150821
  Serious: No
  Sender: FDA-Public Use
  Company Number: None

PATIENT
  Age: 49 Year
  Sex: Female

DRUGS (1)
  1. GLEEVEC [Suspect]
     Active Substance: IMATINIB MESYLATE
     Indication: NEOPLASM
     Route: 048
     Dates: start: 201309

REACTIONS (6)
  - Diarrhoea [None]
  - Nausea [None]
  - Decreased appetite [None]
  - Memory impairment [None]
  - Peripheral swelling [None]
  - Fatigue [None]

NARRATIVE: CASE EVENT DATE: 20150414
